FAERS Safety Report 7328771-5 (Version None)
Quarter: 2011Q1

REPORT INFORMATION
  Report Type: 
  Country: None (occurrence: None)
  Receive Date: 20110216
  Receipt Date: 20110202
  Transmission Date: 20110831
  Serious: Yes (Other)
  Sender: FDA-Public Use
  Company Number: 2011SP005293

PATIENT
  Age: 20 Year
  Sex: Female

DRUGS (1)
  1. DIPROSPAN (BETHAMETHASONE SODIUM PHOSPHATE/DIPROPIONATE) [Suspect]
     Indication: PRODUCT USED FOR UNKNOWN INDICATION
     Dosage: IM
     Route: 030

REACTIONS (2)
  - HYPERAEMIA [None]
  - OEDEMA [None]
